FAERS Safety Report 21840807 (Version 1)
Quarter: 2023Q1

REPORT INFORMATION
  Report Type: Spontaneous
  Country: DE (occurrence: DE)
  Receive Date: 20230110
  Receipt Date: 20230110
  Transmission Date: 20230418
  Serious: Yes (Other)
  Sender: FDA-Public Use
  Company Number: DE-002147023-NVSC2022DE297648

PATIENT
  Sex: Male

DRUGS (2)
  1. BISOPROLOL [Suspect]
     Active Substance: BISOPROLOL
     Indication: Hypertension
     Dosage: 2.5 MILLIGRAM, ONCE A DAY (2.5 MG, QD (IN THE MORNING)
     Route: 065
  2. CANDESARTAN [Suspect]
     Active Substance: CANDESARTAN
     Indication: Product used for unknown indication
     Dosage: 32 MILLIGRAM, ONCE A DAY (16 MG, BID (IN THE MORNING AND EVENING)
     Route: 065

REACTIONS (3)
  - Blood pressure increased [Unknown]
  - Arrhythmia [Unknown]
  - Freezing phenomenon [Unknown]
